FAERS Safety Report 17690169 (Version 2)
Quarter: 2020Q4

REPORT INFORMATION
  Report Type: Spontaneous
  Country: US (occurrence: US)
  Receive Date: 20200421
  Receipt Date: 20201012
  Transmission Date: 20210113
  Serious: Yes (Disabling)
  Sender: FDA-Public Use
  Company Number: US-TEVA-2020-US-1223551

PATIENT
  Age: 59 Year
  Sex: Female
  Weight: 210 kg

DRUGS (21)
  1. PANTOPRAZOLE [Concomitant]
     Active Substance: PANTOPRAZOLE
  2. TAMOXIFEN [Concomitant]
     Active Substance: TAMOXIFEN
     Dates: start: 20160818
  3. COENZYME Q10 [Concomitant]
     Active Substance: DIETARY SUPPLEMENT\UBIDECARENONE
  4. DOCETAXEL WINTHROP US [Suspect]
     Active Substance: DOCETAXEL
     Indication: BREAST CANCER
     Dosage: NUMBER OF CYCLES: 04
     Route: 065
     Dates: start: 201611, end: 201705
  5. METROPROLOL [Concomitant]
     Active Substance: METOPROLOL
  6. ESTADIOL [Concomitant]
     Dates: start: 20160818
  7. ZOFRAN [Concomitant]
     Active Substance: ONDANSETRON HYDROCHLORIDE
     Dates: start: 201705
  8. CETIRIZINE [Concomitant]
     Active Substance: CETIRIZINE HYDROCHLORIDE
  9. ISOSORBIDE MONO [Concomitant]
  10. HYDROCHLOROTHIAZIDE/TRIAMTERENE [Concomitant]
     Active Substance: HYDROCHLOROTHIAZIDE\TRIAMTERENE
  11. LETROZOLE. [Concomitant]
     Active Substance: LETROZOLE
  12. COMPAZINE [Concomitant]
     Active Substance: PROCHLORPERAZINE MALEATE
     Dates: start: 201705
  13. ISOSORBIDE. [Concomitant]
     Active Substance: ISOSORBIDE
  14. VITAMIN D [Concomitant]
     Active Substance: VITAMIN D NOS
  15. IBRANCE [Concomitant]
     Active Substance: PALBOCICLIB
  16. PROGESTERONE. [Concomitant]
     Active Substance: PROGESTERONE
     Dates: start: 20160818
  17. ASPIRIN. [Concomitant]
     Active Substance: ASPIRIN
  18. METOPROLOL SUCCIFATE [Concomitant]
  19. PRAVASTATIN. [Concomitant]
     Active Substance: PRAVASTATIN
  20. DOCETAXEL ACCORD [Suspect]
     Active Substance: DOCETAXEL
     Indication: BREAST CANCER
     Dosage: NUMBER OF CYCLES: 04
     Route: 065
     Dates: start: 201611, end: 201705
  21. FASLODEX [Concomitant]
     Active Substance: FULVESTRANT
     Dates: start: 201705

REACTIONS (2)
  - Alopecia [Not Recovered/Not Resolved]
  - Madarosis [Not Recovered/Not Resolved]

NARRATIVE: CASE EVENT DATE: 201707
